FAERS Safety Report 9948776 (Version 1)
Quarter: 2014Q1

REPORT INFORMATION
  Report Type: Report from Study
  Country: US (occurrence: US)
  Receive Date: 20140303
  Receipt Date: 20140303
  Transmission Date: 20141002
  Serious: No
  Sender: FDA-Public Use
  Company Number: US-ABBVIE-13P-163-1059443-00

PATIENT
  Age: 29 Year
  Sex: Female
  Weight: 58.11 kg

DRUGS (11)
  1. HUMIRA [Suspect]
     Indication: PSORIASIS
     Dates: start: 20120609, end: 20120609
  2. HUMIRA [Suspect]
     Dates: start: 20121012, end: 20121012
  3. PRENATAL [Concomitant]
     Indication: PRODUCT USED FOR UNKNOWN INDICATION
     Route: 048
     Dates: start: 20120512, end: 20120609
  4. PRENATAL [Concomitant]
     Route: 048
     Dates: start: 20120610, end: 20130218
  5. DHA [Concomitant]
     Indication: PRODUCT USED FOR UNKNOWN INDICATION
     Route: 048
     Dates: start: 20120906, end: 20130218
  6. TYLENOL [Concomitant]
     Indication: HEADACHE
     Route: 048
     Dates: start: 20120512, end: 20130218
  7. SUDAFED [Concomitant]
     Indication: SINUS DISORDER
     Route: 048
     Dates: start: 20120106, end: 20120630
  8. INFLUENZA [Concomitant]
     Indication: PRODUCT USED FOR UNKNOWN INDICATION
     Route: 050
     Dates: start: 20121129, end: 20121129
  9. TDAP VACCINE (ADULT) [Concomitant]
     Indication: PRODUCT USED FOR UNKNOWN INDICATION
     Route: 050
     Dates: start: 20121129, end: 20121129
  10. TUMS [Concomitant]
     Indication: DYSPEPSIA
     Route: 048
     Dates: start: 20121115, end: 20130218
  11. PREVACID [Concomitant]
     Indication: DYSPEPSIA
     Dosage: 5 TOTAL
     Route: 048
     Dates: start: 20121115, end: 20130102

REACTIONS (5)
  - Sinus disorder [Unknown]
  - Beta haemolytic streptococcal infection [Unknown]
  - Headache [Unknown]
  - Foot fracture [Unknown]
  - Dyspepsia [Unknown]
